FAERS Safety Report 13193731 (Version 2)
Quarter: 2017Q1

REPORT INFORMATION
  Report Type: Report from Study
  Country: DE (occurrence: DE)
  Receive Date: 20170207
  Receipt Date: 20170217
  Transmission Date: 20170428
  Serious: Yes (Death, Hospitalization, Other)
  Sender: FDA-Public Use
  Company Number: PHHY2017DE016285

PATIENT
  Age: 81 Year
  Sex: Male
  Weight: 97 kg

DRUGS (17)
  1. LOSARTAN. [Concomitant]
     Active Substance: LOSARTAN
     Indication: HYPERTENSION
     Dosage: 50 MG, QD
     Route: 065
     Dates: start: 20150128
  2. PANTOZOL [Concomitant]
     Active Substance: PANTOPRAZOLE SODIUM
     Indication: PRODUCT USED FOR UNKNOWN INDICATION
     Dosage: 40 MG, QD
     Route: 065
     Dates: start: 201406
  3. DEKRISTOL [Concomitant]
     Active Substance: CHOLECALCIFEROL
     Indication: VITAMIN D DEFICIENCY
     Dosage: 20000 IE/ WEEK 1X1 EVERY 2 WEEKS
     Route: 065
  4. ASA [Concomitant]
     Active Substance: ASPIRIN
     Indication: CORONARY ARTERY DISEASE
     Dosage: 100 MG, QD
     Route: 065
     Dates: start: 201405
  5. ASA [Concomitant]
     Active Substance: ASPIRIN
     Indication: ATRIAL FIBRILLATION
  6. LACTULOSE. [Concomitant]
     Active Substance: LACTULOSE
     Indication: CONSTIPATION
     Dosage: ON DEMAND
     Route: 065
     Dates: start: 201405
  7. INNOHEP [Concomitant]
     Active Substance: TINZAPARIN SODIUM
     Indication: ATRIAL FIBRILLATION
  8. LYRICA [Concomitant]
     Active Substance: PREGABALIN
     Indication: LEG AMPUTATION
     Dosage: 75 UNK, QD
     Route: 065
     Dates: start: 201409
  9. ACTRAPID [Concomitant]
     Active Substance: INSULIN HUMAN
     Indication: INSULIN-REQUIRING TYPE 2 DIABETES MELLITUS
     Dosage: IE ACC. SCEME
     Route: 065
  10. INNOHEP [Concomitant]
     Active Substance: TINZAPARIN SODIUM
     Indication: CORONARY ARTERY DISEASE
     Dosage: 20000IE-0.5ML 1X1, QD
     Route: 065
     Dates: start: 201302
  11. SIMVASTATIN. [Concomitant]
     Active Substance: SIMVASTATIN
     Indication: ATRIAL FIBRILLATION
  12. DESFERAL [Suspect]
     Active Substance: DEFEROXAMINE MESYLATE
     Indication: MYELODYSPLASTIC SYNDROME
     Dosage: 2000 MG, QD(20.6 MG/KG, QD (BODYWEIGHT/DAY=250ML))
     Route: 042
     Dates: start: 20160301, end: 20170118
  13. LANTUS [Concomitant]
     Active Substance: INSULIN GLARGINE
     Indication: INSULIN-REQUIRING TYPE 2 DIABETES MELLITUS
     Dosage: IE ACC. SCEME
     Route: 065
  14. SIMVASTATIN. [Concomitant]
     Active Substance: SIMVASTATIN
     Indication: CORONARY ARTERY DISEASE
     Dosage: 20 MG, QD
     Route: 065
     Dates: start: 201201
  15. METOPROLOL. [Concomitant]
     Active Substance: METOPROLOL
     Indication: HYPERTENSION
     Dosage: 47.5 MG, QD
     Route: 065
  16. TORASEMIDE [Concomitant]
     Active Substance: TORSEMIDE
     Indication: HYPERTENSION
     Dosage: 30 MG, QD (20MG-10MG-0)
     Route: 065
  17. NOVAMINOSULFON [Concomitant]
     Active Substance: METAMIZOLE SODIUM
     Indication: LEG AMPUTATION
     Dosage: 90 GTT, QD  (90DROPS/ DAY 30-30-30-0)
     Route: 065
     Dates: start: 201409

REACTIONS (2)
  - Death [Fatal]
  - Haemoglobin decreased [Not Recovered/Not Resolved]

NARRATIVE: CASE EVENT DATE: 20160926
